FAERS Safety Report 24558361 (Version 1)
Quarter: 2024Q4

REPORT INFORMATION
  Report Type: Spontaneous
  Country: SE (occurrence: SE)
  Receive Date: 20241029
  Receipt Date: 20241029
  Transmission Date: 20250115
  Serious: Yes (Disabling)
  Sender: ALCON
  Company Number: None

PATIENT

DRUGS (2)
  1. NETARSUDIL [Suspect]
     Active Substance: NETARSUDIL
     Indication: Open angle glaucoma
     Dosage: 1 DROP/EYE 1 TIME/DAY
     Dates: start: 20240217
  2. LATANOPROST [Concomitant]
     Active Substance: LATANOPROST
     Indication: Product used for unknown indication
     Dosage: 1 DROP/EYE 1 TIME/DAY

REACTIONS (3)
  - Blepharitis [Unknown]
  - Corneal endothelial disorder [Unknown]
  - Corneal pigmentation [Unknown]

NARRATIVE: CASE EVENT DATE: 20240301
